FAERS Safety Report 7454851-X (Version None)
Quarter: 2011Q2

REPORT INFORMATION
  Report Type: 
  Country: None (occurrence: None)
  Receive Date: 20110425
  Receipt Date: 20110411
  Transmission Date: 20111010
  Serious: Yes (Hospitalization)
  Sender: FDA-Public Use
  Company Number: 1000020168

PATIENT
  Age: 62 Year
  Sex: Male

DRUGS (6)
  1. MILNACIPRAM (MILNACIPRAN HYDROCHLORIDE) (CAPSULES) [Suspect]
     Indication: DEPRESSION
     Dosage: 50 MG (50 MG, 1 IN 1 D), ORAL
     Route: 048
     Dates: start: 20110301
  2. PLAVIX [Concomitant]
  3. RIVOTRIL (CLONAZEPAM) [Concomitant]
  4. PENTOXIFYLLINE [Concomitant]
  5. LAMICTAL [Concomitant]
  6. FONZYLANE (BUFLOMEDIL HYDROCHLORIDE) [Concomitant]

REACTIONS (4)
  - REFUSAL OF TREATMENT BY PATIENT [None]
  - AGGRESSION [None]
  - TRANSIENT ISCHAEMIC ATTACK [None]
  - FATIGUE [None]
